FAERS Safety Report 8814448 (Version 2)
Quarter: 2013Q1

REPORT INFORMATION
  Report Type: Spontaneous
  Country: JP (occurrence: JP)
  Receive Date: 20120928
  Receipt Date: 20121016
  Transmission Date: 20140127
  Serious: Yes (Hospitalization)
  Sender: FDA-Public Use
  Company Number: JP-PFIZER INC-2012236447

PATIENT
  Age: 59 Year
  Sex: Male

DRUGS (10)
  1. SEIBULE [Suspect]
     Indication: TYPE 1 DIABETES MELLITUS
     Dosage: 50 MG, 3X/DAY
     Route: 048
     Dates: end: 20120703
  2. OLMETEC [Suspect]
     Indication: HYPERTENSION
     Dosage: 20 MG, 1X/DAY
     Route: 048
     Dates: end: 20120703
  3. LIVALO [Suspect]
     Indication: HYPERLIPIDAEMIA
     Dosage: 1 MG, 1X/DAY
     Route: 048
     Dates: end: 20120703
  4. BLOPRESS [Suspect]
     Indication: HYPERTENSION
     Dosage: 8 MG, QD
     Route: 048
     Dates: end: 20120703
  5. ANOPROLIN [Suspect]
     Indication: HYPERURICAEMIA
     Dosage: 100 MG, 1X/DAY
     Route: 048
     Dates: end: 20120703
  6. PATYUNA [Suspect]
     Dosage: 100 MG, UNK
     Route: 048
     Dates: start: 201206, end: 20120703
  7. PERMILTIN [Suspect]
     Indication: RENAL FAILURE CHRONIC
     Dosage: 50 MG, 3X/DAY
     Route: 048
     Dates: start: 201206, end: 20120703
  8. AMOLIN [Suspect]
  9. HUMALOG [Concomitant]
     Dosage: UNK
  10. LANTUS [Concomitant]
     Dosage: UNK

REACTIONS (1)
  - Cholestasis [Recovered/Resolved]
